FAERS Safety Report 6130207-7 (Version None)
Quarter: 2009Q1

REPORT INFORMATION
  Report Type: 
  Country: None (occurrence: None)
  Receive Date: 20090324
  Receipt Date: 20090317
  Transmission Date: 20090719
  Serious: Yes (Life-Threatening)
  Sender: FDA-Public Use
  Company Number: IT-ABBOTT-09P-083-0562793-00

PATIENT
  Sex: Female

DRUGS (4)
  1. HUMIRA [Suspect]
     Indication: RHEUMATOID ARTHRITIS
     Route: 058
     Dates: start: 20060301, end: 20090215
  2. AUGMENTIN [Concomitant]
     Indication: TRACHEITIS
     Dosage: ONE GRAM DAILY
     Route: 048
     Dates: start: 20090215, end: 20090215
  3. MEDROL [Concomitant]
     Indication: RHEUMATOID ARTHRITIS
     Dosage: 4 MG DAILY
     Route: 048
     Dates: start: 20060301, end: 20090215
  4. EUTIROX [Concomitant]
     Indication: DRUG USE FOR UNKNOWN INDICATION
     Dosage: 75 MCG DAILY
     Route: 048
     Dates: start: 20060301, end: 20090215

REACTIONS (5)
  - ANGIOEDEMA [None]
  - BRONCHOSPASM [None]
  - DIARRHOEA [None]
  - PRURITUS [None]
  - VOMITING [None]
